FAERS Safety Report 19302266 (Version 19)
Quarter: 2025Q1

REPORT INFORMATION
  Report Type: Report from Study
  Country: US (occurrence: US)
  Receive Date: 20210525
  Receipt Date: 20250326
  Transmission Date: 20250409
  Serious: Yes (Other)
  Sender: TAKEDA
  Company Number: US-TAKEDA-2021TUS031740

PATIENT
  Age: 34 Year
  Sex: Female
  Weight: 90 kg

DRUGS (56)
  1. HUMAN IMMUNOGLOBULIN G [Suspect]
     Active Substance: HUMAN IMMUNOGLOBULIN G
     Indication: Immunodeficiency common variable
     Dosage: 17 GRAM, 1/WEEK
     Dates: start: 20210527
  2. HUMAN IMMUNOGLOBULIN G [Suspect]
     Active Substance: HUMAN IMMUNOGLOBULIN G
  3. CUVITRU [Suspect]
     Active Substance: HUMAN IMMUNOGLOBULIN G
     Indication: Immunodeficiency common variable
     Dosage: 20 GRAM, 1/WEEK
     Dates: start: 20210527
  4. CUVITRU [Suspect]
     Active Substance: HUMAN IMMUNOGLOBULIN G
     Dosage: 22 GRAM, 1/WEEK
  5. DIFLUCAN [Concomitant]
     Active Substance: FLUCONAZOLE
  6. CETIRIZINE [Concomitant]
     Active Substance: CETIRIZINE HYDROCHLORIDE
  7. PANTOPRAZOLE [Concomitant]
     Active Substance: PANTOPRAZOLE
  8. MELOXICAM [Concomitant]
     Active Substance: MELOXICAM
  9. ALLEGRA ALLERGY [Concomitant]
     Active Substance: FEXOFENADINE HYDROCHLORIDE
  10. EPIPEN [Concomitant]
     Active Substance: EPINEPHRINE
  11. PREMARIN [Concomitant]
     Active Substance: ESTROGENS, CONJUGATED
  12. HYDROXYZINE [Concomitant]
     Active Substance: HYDROXYZINE HYDROCHLORIDE
  13. IRON [Concomitant]
     Active Substance: IRON
  14. BUDESONIDE [Concomitant]
     Active Substance: BUDESONIDE
  15. PEPCID [Concomitant]
     Active Substance: FAMOTIDINE
  16. ONDANSETRON [Concomitant]
     Active Substance: ONDANSETRON
  17. SPIRIVA RESPIMAT [Concomitant]
     Active Substance: TIOTROPIUM BROMIDE
  18. BACLOFEN [Concomitant]
     Active Substance: BACLOFEN
  19. VANOS [Concomitant]
     Active Substance: FLUOCINONIDE
  20. OPTIVAR [Concomitant]
     Active Substance: AZELASTINE HYDROCHLORIDE
  21. ZOLOFT [Concomitant]
     Active Substance: SERTRALINE HYDROCHLORIDE
  22. AZELASTINE [Concomitant]
     Active Substance: AZELASTINE
  23. HYDROCORTISONE [Concomitant]
     Active Substance: HYDROCORTISONE
  24. ELIDEL [Concomitant]
     Active Substance: PIMECROLIMUS
  25. PYRIDOXINE HYDROCHLORIDE [Concomitant]
     Active Substance: PYRIDOXINE HYDROCHLORIDE
  26. CLOBETASOL [Concomitant]
     Active Substance: CLOBETASOL
  27. GABAPENTIN [Concomitant]
     Active Substance: GABAPENTIN
  28. SOOLANTRA [Concomitant]
     Active Substance: IVERMECTIN
  29. KETOCONAZOLE [Concomitant]
     Active Substance: KETOCONAZOLE
  30. NASACORT [Concomitant]
     Active Substance: TRIAMCINOLONE ACETONIDE
  31. FISH OIL [Concomitant]
     Active Substance: FISH OIL
  32. VITAMIN D2 [Concomitant]
     Active Substance: ERGOCALCIFEROL
  33. PLAQUENIL [Concomitant]
     Active Substance: HYDROXYCHLOROQUINE SULFATE
  34. MAGNESIUM OXIDE [Concomitant]
     Active Substance: MAGNESIUM OXIDE
  35. DOXYCYCLINE [Concomitant]
     Active Substance: DOXYCYCLINE
  36. TRAMADOL [Concomitant]
     Active Substance: TRAMADOL
  37. TRAZODONE [Concomitant]
     Active Substance: TRAZODONE HYDROCHLORIDE
  38. ACETAMINOPHEN [Concomitant]
     Active Substance: ACETAMINOPHEN
  39. DIPHENHYDRAMINE [Concomitant]
     Active Substance: DIPHENHYDRAMINE
  40. EPINEPHRINE [Concomitant]
     Active Substance: EPINEPHRINE
  41. Lmx [Concomitant]
  42. MONTELUKAST [Concomitant]
     Active Substance: MONTELUKAST
  43. FLUOCINOLONE ACETONIDE [Concomitant]
     Active Substance: FLUOCINOLONE ACETONIDE
  44. BUSPIRONE HCL [Concomitant]
     Active Substance: BUSPIRONE HYDROCHLORIDE
  45. AZELASTINE HYDROCHLORIDE [Concomitant]
     Active Substance: AZELASTINE HYDROCHLORIDE
  46. CETIRIZINE HCL [Concomitant]
     Active Substance: CETIRIZINE HYDROCHLORIDE
  47. PANTOPRAZOLE SODIUM [Concomitant]
     Active Substance: PANTOPRAZOLE SODIUM
  48. HYDROXYZINE HYDROCHLORIDE [Concomitant]
     Active Substance: HYDROXYZINE HYDROCHLORIDE
  49. ONDANSETRON [Concomitant]
     Active Substance: ONDANSETRON
  50. MONTELUKAST SODIUM [Concomitant]
     Active Substance: MONTELUKAST SODIUM
  51. DOXYCYCLINE HYCLATE [Concomitant]
     Active Substance: DOXYCYCLINE HYCLATE
  52. TRAMADOL HCL [Concomitant]
     Active Substance: TRAMADOL HYDROCHLORIDE
  53. TRAZODONE HCL [Concomitant]
     Active Substance: TRAZODONE HYDROCHLORIDE
  54. PROAIR HFA [Concomitant]
     Active Substance: ALBUTEROL SULFATE
  55. VITAMIN D [Concomitant]
     Active Substance: VITAMIN D NOS
  56. DIPHENHYDRAMINE HYDROCHLORIDE [Concomitant]
     Active Substance: DIPHENHYDRAMINE HYDROCHLORIDE

REACTIONS (13)
  - COVID-19 pneumonia [Unknown]
  - Subclavian vein thrombosis [Unknown]
  - Deep vein thrombosis [Unknown]
  - Meningitis aseptic [Unknown]
  - Gastrointestinal viral infection [Unknown]
  - Staphylococcal infection [Unknown]
  - Urinary tract infection [Unknown]
  - Product dose omission issue [Unknown]
  - Product distribution issue [Unknown]
  - Upper respiratory tract infection [Unknown]
  - Sinusitis [Not Recovered/Not Resolved]
  - Influenza [Unknown]
  - Headache [Unknown]

NARRATIVE: CASE EVENT DATE: 20210624
